FAERS Safety Report 12426187 (Version 1)
Quarter: 2016Q2

REPORT INFORMATION
  Report Type: Spontaneous
  Country: US (occurrence: US)
  Receive Date: 20160601
  Receipt Date: 20160601
  Transmission Date: 20160815
  Serious: Yes (Congenital Anomaly, Other)
  Sender: FDA-Public Use
  Company Number: US-JNJFOC-20160524055

PATIENT

DRUGS (1)
  1. INFLIXIMAB, RECOMBINANT [Suspect]
     Active Substance: INFLIXIMAB
     Indication: INFLAMMATORY BOWEL DISEASE
     Route: 064

REACTIONS (8)
  - Foetal exposure during pregnancy [Unknown]
  - Otitis media [Unknown]
  - Exposure during breast feeding [Unknown]
  - Gastroenteritis viral [Unknown]
  - Sinusitis [Unknown]
  - Developmental hip dysplasia [Unknown]
  - Hand-foot-and-mouth disease [Unknown]
  - Upper respiratory tract infection [Unknown]
